FAERS Safety Report 4893484-6 (Version None)
Quarter: 2006Q1

REPORT INFORMATION
  Report Type: 
  Country: None (occurrence: None)
  Receive Date: 20060127
  Receipt Date: 20050803
  Transmission Date: 20060701
  Serious: No
  Sender: FDA-Public Use
  Company Number: US-BRISTOL-MYERS SQUIBB COMPANY-13061742

PATIENT
  Age: 27 Year
  Sex: Female

DRUGS (1)
  1. KENALOG [Suspect]
     Route: 030
     Dates: start: 20041208, end: 20041208

REACTIONS (3)
  - APPLICATION SITE DISCOLOURATION [None]
  - CONTUSION [None]
  - INJECTION SITE ATROPHY [None]
